FAERS Safety Report 11836526 (Version 1)
Quarter: 2015Q4

REPORT INFORMATION
  Report Type: Report from Study
  Country: JP (occurrence: JP)
  Receive Date: 20151215
  Receipt Date: 20151215
  Transmission Date: 20160305
  Serious: Yes (Hospitalization)
  Sender: FDA-Public Use
  Company Number: JP-VIFOR (INTERNATIONAL) INC.-VIT-2015-03410

PATIENT
  Age: 75 Year
  Sex: Male

DRUGS (26)
  1. MIRCERA [Suspect]
     Active Substance: METHOXY POLYETHYLENE GLYCOL-EPOETIN BETA
     Route: 058
     Dates: start: 20141027, end: 20150105
  2. MIRCERA [Suspect]
     Active Substance: METHOXY POLYETHYLENE GLYCOL-EPOETIN BETA
     Route: 058
     Dates: start: 20150317
  3. AMLODIPINE [Concomitant]
     Active Substance: AMLODIPINE BESYLATE
     Route: 048
  4. AMLODIPINE [Concomitant]
     Active Substance: AMLODIPINE BESYLATE
     Route: 048
  5. ADALAT CC [Concomitant]
     Active Substance: NIFEDIPINE
     Route: 048
     Dates: start: 20131012
  6. GASTER [Concomitant]
     Active Substance: FAMOTIDINE
     Route: 048
     Dates: start: 201305
  7. MICARDIS [Concomitant]
     Active Substance: TELMISARTAN
     Route: 048
     Dates: start: 20130409
  8. FUROSEMIDE. [Concomitant]
     Active Substance: FUROSEMIDE
     Route: 048
     Dates: start: 20130409, end: 20130416
  9. FEBURIC [Concomitant]
     Active Substance: FEBUXOSTAT
     Route: 048
     Dates: start: 20131012
  10. SODIUM BICARBONATE. [Concomitant]
     Active Substance: SODIUM BICARBONATE
     Route: 048
     Dates: start: 20140526, end: 20150309
  11. CRESTOR [Concomitant]
     Active Substance: ROSUVASTATIN CALCIUM
     Route: 048
     Dates: start: 20131012
  12. MIRCERA [Suspect]
     Active Substance: METHOXY POLYETHYLENE GLYCOL-EPOETIN BETA
     Route: 058
     Dates: start: 20150227, end: 20150227
  13. JUVELA N [Concomitant]
     Active Substance: TOCOPHERYL NICOTINATE, D-.ALPHA.
     Route: 048
     Dates: start: 20131002
  14. SODIUM BICARBONATE. [Concomitant]
     Active Substance: SODIUM BICARBONATE
     Route: 048
     Dates: start: 20150309
  15. MIRCERA [Suspect]
     Active Substance: METHOXY POLYETHYLENE GLYCOL-EPOETIN BETA
     Indication: NEPHROGENIC ANAEMIA
     Route: 058
     Dates: start: 20140526, end: 20130930
  16. MIRCERA [Suspect]
     Active Substance: METHOXY POLYETHYLENE GLYCOL-EPOETIN BETA
     Route: 058
     Dates: start: 20140825, end: 20140825
  17. ADALAT CC [Concomitant]
     Active Substance: NIFEDIPINE
     Route: 048
     Dates: start: 20130902
  18. MIRCERA [Suspect]
     Active Substance: METHOXY POLYETHYLENE GLYCOL-EPOETIN BETA
     Route: 058
     Dates: start: 20130526, end: 20140728
  19. MIRCERA [Suspect]
     Active Substance: METHOXY POLYETHYLENE GLYCOL-EPOETIN BETA
     Route: 058
     Dates: start: 20131216, end: 20140421
  20. MIRCERA [Suspect]
     Active Substance: METHOXY POLYETHYLENE GLYCOL-EPOETIN BETA
     Route: 058
     Dates: start: 20140922, end: 20140922
  21. ALFAROL [Concomitant]
     Active Substance: ALFACALCIDOL
     Route: 048
     Dates: start: 20140922
  22. MIRCERA [Suspect]
     Active Substance: METHOXY POLYETHYLENE GLYCOL-EPOETIN BETA
     Route: 058
     Dates: start: 20131012, end: 20131012
  23. MIRCERA [Suspect]
     Active Substance: METHOXY POLYETHYLENE GLYCOL-EPOETIN BETA
     Route: 058
     Dates: start: 20131108, end: 20131108
  24. ADALAT CC [Concomitant]
     Active Substance: NIFEDIPINE
     Route: 048
  25. MICARDIS [Concomitant]
     Active Substance: TELMISARTAN
     Route: 048
     Dates: start: 20130409
  26. TAKEPRON [Concomitant]
     Active Substance: LANSOPRAZOLE
     Route: 048
     Dates: start: 201305

REACTIONS (6)
  - Pain in extremity [Recovering/Resolving]
  - Fat embolism [Recovering/Resolving]
  - Skin discolouration [Recovering/Resolving]
  - Hypertension [Recovering/Resolving]
  - Sciatica [Recovering/Resolving]
  - Polycythaemia [Recovered/Resolved]

NARRATIVE: CASE EVENT DATE: 20130416
